FAERS Safety Report 4933130-6 (Version None)
Quarter: 2006Q1

REPORT INFORMATION
  Report Type: 
  Country: None (occurrence: None)
  Receive Date: 20060306
  Receipt Date: 20051107
  Transmission Date: 20060701
  Serious: Yes (Hospitalization)
  Sender: FDA-Public Use
  Company Number: PHBS2005CH16643

PATIENT
  Age: 90 Year
  Sex: Female

DRUGS (6)
  1. TEGRETOL [Suspect]
     Indication: FACIAL NEURALGIA
     Dosage: 200 MG, BID
     Route: 065
     Dates: start: 19980101
  2. THIAZIDES [Suspect]
  3. CALCIUM CHANNEL BLOCKERS [Suspect]
  4. BETA BLOCKING AGENTS AND OTHER ANTIHYPERTENSI [Suspect]
  5. ACE INHIBITORS AND DIURETICS [Suspect]
  6. PHYSIOTENS [Suspect]
     Indication: HYPERTENSION

REACTIONS (7)
  - AORTIC VALVE REPLACEMENT [None]
  - BLOOD PRESSURE SYSTOLIC INCREASED [None]
  - CARDIAC FAILURE [None]
  - DRUG INTERACTION [None]
  - DRUG RESISTANCE [None]
  - HYPERTENSION [None]
  - VENTRICULAR HYPERTROPHY [None]
